FAERS Safety Report 17164062 (Version 3)
Quarter: 2020Q1

REPORT INFORMATION
  Report Type: Report from Study
  Country: None (occurrence: US)
  Receive Date: 20191217
  Receipt Date: 20200317
  Transmission Date: 20200409
  Serious: Yes (Other)
  Sender: FDA-Public Use
  Company Number: US-ABBVIE-19P-163-3193421-00

PATIENT
  Age: 65 Year
  Sex: Male

DRUGS (1)
  1. IMBRUVICA [Suspect]
     Active Substance: IBRUTINIB
     Indication: CHRONIC LYMPHOCYTIC LEUKAEMIA
     Route: 048

REACTIONS (4)
  - Peripheral swelling [Recovered/Resolved]
  - Diarrhoea [Recovering/Resolving]
  - Myocardial infarction [Recovering/Resolving]
  - Cold sweat [Unknown]

NARRATIVE: CASE EVENT DATE: 201911
